FAERS Safety Report 24179573 (Version 2)
Quarter: 2024Q3

REPORT INFORMATION
  Report Type: Spontaneous
  Country: BO (occurrence: BO)
  Receive Date: 20240806
  Receipt Date: 20240819
  Transmission Date: 20241016
  Serious: Yes (Hospitalization)
  Sender: ROCHE
  Company Number: BO-ROCHE-10000047375

PATIENT
  Age: 36 Year
  Sex: Male

DRUGS (1)
  1. EMICIZUMAB [Suspect]
     Active Substance: EMICIZUMAB
     Indication: Haemophilia
     Route: 065

REACTIONS (3)
  - Fistula [Unknown]
  - Haematoma evacuation [Unknown]
  - Haemophilic pseudotumour [Unknown]

NARRATIVE: CASE EVENT DATE: 20240528
